FAERS Safety Report 17789194 (Version 1)
Quarter: 2020Q2

REPORT INFORMATION
  Report Type: Spontaneous
  Country: FR (occurrence: FR)
  Receive Date: 20200514
  Receipt Date: 20200514
  Transmission Date: 20200714
  Serious: Yes (Hospitalization)
  Sender: FDA-Public Use
  Company Number: FR-PFIZER INC-2020191278

PATIENT
  Age: 15 Year
  Sex: Male

DRUGS (2)
  1. LYRICA [Suspect]
     Active Substance: PREGABALIN
     Dosage: UNK
  2. CLONAZEPAM. [Suspect]
     Active Substance: CLONAZEPAM
     Dosage: UNK

REACTIONS (5)
  - Housebound [Not Recovered/Not Resolved]
  - Somnolence [Recovering/Resolving]
  - Off label use [Unknown]
  - Drug abuse [Not Recovered/Not Resolved]
  - Product use issue [Unknown]
